FAERS Safety Report 4506999-7 (Version None)
Quarter: 2004Q4

REPORT INFORMATION
  Report Type: 
  Country: None (occurrence: None)
  Receive Date: 20041117
  Receipt Date: 20041103
  Transmission Date: 20050328
  Serious: Yes (Death, Hospitalization)
  Sender: FDA-Public Use
  Company Number: 2004EU001974

PATIENT
  Age: 59 Year
  Sex: Male

DRUGS (4)
  1. PROGRAF [Suspect]
     Indication: LIVER TRANSPLANT
     Dates: start: 20020101, end: 20020601
  2. PROGRAF [Suspect]
     Indication: LIVER TRANSPLANT
     Dates: start: 20020601, end: 20020601
  3. MUROMONAB-CD3        (MUROMONAB-CD3) [Suspect]
     Indication: LIVER TRANSPLANT REJECTION
     Dosage: 5.00 MG
  4. PREDNISONE [Concomitant]

REACTIONS (10)
  - ANURIA [None]
  - BRONCHOALVEOLAR LAVAGE ABNORMAL [None]
  - CHEST X-RAY ABNORMAL [None]
  - CONFUSIONAL STATE [None]
  - HAEMODIALYSIS [None]
  - LIVER TRANSPLANT REJECTION [None]
  - LYMPHOPROLIFERATIVE DISORDER [None]
  - MULTI-ORGAN FAILURE [None]
  - PYREXIA [None]
  - RENAL FAILURE ACUTE [None]
